FAERS Safety Report 9828308 (Version 2)
Quarter: 2014Q1

REPORT INFORMATION
  Report Type: Spontaneous
  Country: US (occurrence: US)
  Receive Date: 20140117
  Receipt Date: 20140117
  Transmission Date: 20141002
  Serious: No
  Sender: FDA-Public Use
  Company Number: US-GILEAD-2013-0077520

PATIENT
  Sex: Female

DRUGS (4)
  1. LETAIRIS [Suspect]
     Indication: PULMONARY ARTERIAL HYPERTENSION
     Dosage: 10 MG, QD
     Route: 065
     Dates: start: 20111206, end: 201306
  2. LETAIRIS [Suspect]
     Indication: LEFT VENTRICULAR DYSFUNCTION
  3. LETAIRIS [Suspect]
     Indication: PULMONARY HYPERTENSION
  4. OPSUMIT [Concomitant]
     Indication: PRODUCT USED FOR UNKNOWN INDICATION

REACTIONS (2)
  - Catheterisation cardiac [Unknown]
  - Oedema peripheral [Unknown]
